FAERS Safety Report 15210524 (Version 1)
Quarter: 2018Q3

REPORT INFORMATION
  Report Type: Report from Study
  Country: DE (occurrence: DE)
  Receive Date: 20180727
  Receipt Date: 20180727
  Transmission Date: 20181010
  Serious: Yes (Other)
  Sender: FDA-Public Use
  Company Number: DE-AMGEN-DEUSL2018100154

PATIENT
  Sex: Male

DRUGS (2)
  1. CISPLATIN. [Concomitant]
     Active Substance: CISPLATIN
     Indication: NON-SMALL CELL LUNG CANCER
     Dosage: UNK
     Route: 065
     Dates: start: 2013, end: 2015
  2. XGEVA [Suspect]
     Active Substance: DENOSUMAB
     Indication: PROPHYLAXIS
     Dosage: UNK UNK, Q4WK
     Route: 065
     Dates: start: 201407, end: 201804

REACTIONS (6)
  - Non-small cell lung cancer [Recovered/Resolved]
  - Back pain [Recovered/Resolved]
  - Osteonecrosis of jaw [Recovering/Resolving]
  - Fatigue [Recovered/Resolved]
  - Impaired healing [Recovering/Resolving]
  - Exostosis of jaw [Recovering/Resolving]

NARRATIVE: CASE EVENT DATE: 2015
